FAERS Safety Report 14024245 (Version 1)
Quarter: 2017Q3

REPORT INFORMATION
  Report Type: Spontaneous
  Country: US (occurrence: US)
  Receive Date: 20170928
  Receipt Date: 20170928
  Transmission Date: 20171128
  Serious: No
  Sender: FDA-Public Use
  Company Number: US-SA-2016SA234984

PATIENT
  Age: 48 Year
  Sex: Female

DRUGS (5)
  1. PROTONIX [Concomitant]
     Active Substance: PANTOPRAZOLE SODIUM
  2. VITAMIN D [Concomitant]
     Active Substance: CHOLECALCIFEROL
  3. BACLOFEN. [Concomitant]
     Active Substance: BACLOFEN
  4. CALCIUM [Concomitant]
     Active Substance: CALCIUM
  5. AUBAGIO [Suspect]
     Active Substance: TERIFLUNOMIDE
     Indication: MULTIPLE SCLEROSIS
     Route: 048
     Dates: start: 201605

REACTIONS (5)
  - Vision blurred [Unknown]
  - Hypersomnia [Unknown]
  - Fatigue [Unknown]
  - Urinary tract infection [Unknown]
  - Hypertension [Unknown]

NARRATIVE: CASE EVENT DATE: 201611
